FAERS Safety Report 16487714 (Version 1)
Quarter: 2019Q3

REPORT INFORMATION
  Report Type: Spontaneous
  Country: US (occurrence: US)
  Receive Date: 20190626
  Receipt Date: 20190626
  Transmission Date: 20191004
  Serious: Yes (Hospitalization)
  Sender: FDA-Public Use
  Company Number: None

PATIENT
  Age: 85 Year
  Sex: Female
  Weight: 49.05 kg

DRUGS (1)
  1. OLMESARTAN/HCTZ [Suspect]
     Active Substance: HYDROCHLOROTHIAZIDE\OLMESARTAN MEDOXOMIL
     Indication: HYPERTENSION
     Route: 048
     Dates: start: 20050101, end: 20190416

REACTIONS (4)
  - Cyst removal [None]
  - Diarrhoea [None]
  - Weight decreased [None]
  - Obstruction [None]

NARRATIVE: CASE EVENT DATE: 20190503
